FAERS Safety Report 9134082 (Version 1)
Quarter: 2013Q1

REPORT INFORMATION
  Report Type: Spontaneous
  Country: US (occurrence: None)
  Receive Date: 20130228
  Receipt Date: 20130228
  Transmission Date: 20140127
  Serious: Yes (Death)
  Sender: FDA-Public Use
  Company Number: None

PATIENT
  Age: 57 Year
  Sex: Male
  Weight: 141.52 kg

DRUGS (1)
  1. DEFINITY [Suspect]
     Indication: CARDIAC STRESS TEST
     Route: 042
     Dates: start: 20121205

REACTIONS (6)
  - Dyspnoea [None]
  - Unresponsive to stimuli [None]
  - Laryngeal oedema [None]
  - Endotracheal intubation complication [None]
  - Laryngeal oedema [None]
  - Pulmonary oedema [None]
